FAERS Safety Report 9958393 (Version 2)
Quarter: 2014Q2

REPORT INFORMATION
  Report Type: Spontaneous
  Country: US (occurrence: US)
  Receive Date: 20140305
  Receipt Date: 20140408
  Transmission Date: 20141212
  Serious: Yes (Other)
  Sender: FDA-Public Use
  Company Number: US-PFIZER INC-2014057501

PATIENT
  Age: 56 Year
  Sex: Male

DRUGS (2)
  1. SULFASALAZINE [Suspect]
     Indication: COLITIS
     Dosage: UNK
     Route: 048
  2. AZULFIDINE [Concomitant]
     Indication: COLITIS
     Dosage: (500 MG TABS) 3 TABS, 2X/DAY
     Route: 048
     Dates: start: 1983

REACTIONS (3)
  - Haemorrhage [Unknown]
  - Muscle spasms [Unknown]
  - Nausea [Unknown]
